FAERS Safety Report 14104150 (Version 1)
Quarter: 2017Q4

REPORT INFORMATION
  Report Type: Spontaneous
  Country: US (occurrence: US)
  Receive Date: 20171018
  Receipt Date: 20171018
  Transmission Date: 20180321
  Serious: No
  Sender: FDA-Public Use
  Company Number: US-AMGEN-USASP2017105779

PATIENT
  Age: 83 Year
  Sex: Female

DRUGS (4)
  1. ESCITALOPRAM [Concomitant]
     Active Substance: ESCITALOPRAM OXALATE
     Indication: ANXIETY
     Dosage: 20 MG, QD
  2. METOPROLOL. [Concomitant]
     Active Substance: METOPROLOL
     Indication: TACHYCARDIA
     Dosage: 25 MG, QD
  3. PROLIA [Suspect]
     Active Substance: DENOSUMAB
     Indication: OSTEOPOROSIS POSTMENOPAUSAL
     Dosage: UNK, UNK
     Route: 065
     Dates: start: 201701
  4. RESTASIS [Concomitant]
     Active Substance: CYCLOSPORINE
     Indication: DRY EYE

REACTIONS (1)
  - Cold sweat [Not Recovered/Not Resolved]

NARRATIVE: CASE EVENT DATE: 2017
